FAERS Safety Report 8003961-7 (Version None)
Quarter: 2011Q4

REPORT INFORMATION
  Report Type: 
  Country: None (occurrence: None)
  Receive Date: 20111222
  Receipt Date: 20111216
  Transmission Date: 20120403
  Serious: Yes (Hospitalization)
  Sender: FDA-Public Use
  Company Number: US-BAYER-2011-049754

PATIENT
  Age: 28 Year
  Sex: Female
  Weight: 70.748 kg

DRUGS (1)
  1. YAZ [Suspect]
     Indication: CONTRACEPTION
     Dosage: UNK
     Dates: start: 20090301, end: 20091201

REACTIONS (3)
  - INJURY [None]
  - CHOLECYSTITIS [None]
  - PAIN [None]
